FAERS Safety Report 16313387 (Version 1)
Quarter: 2019Q2

REPORT INFORMATION
  Report Type: Spontaneous
  Country: US (occurrence: US)
  Receive Date: 20190409
  Receipt Date: 20190409
  Transmission Date: 20190711
  Serious: Yes (Death)
  Sender: FDA-Public Use
  Company Number: None

PATIENT
  Age: 64 Year
  Sex: Female

DRUGS (7)
  1. OMPRA/BICAR [Concomitant]
  2. PROAIR HFA [Concomitant]
     Active Substance: ALBUTEROL SULFATE
  3. LECOFLOXACIN [Concomitant]
  4. DEXAMETHASON [Concomitant]
     Active Substance: DEXAMETHASONE
  5. FENOFIBRATE. [Concomitant]
     Active Substance: FENOFIBRATE
  6. ASPIRIN. [Concomitant]
     Active Substance: ASPIRIN
  7. ALECENSA [Suspect]
     Active Substance: ALECTINIB HYDROCHLORIDE
     Indication: BRONCHIAL CARCINOMA
     Route: 048
     Dates: start: 20190406, end: 20190407

REACTIONS (1)
  - Death [None]

NARRATIVE: CASE EVENT DATE: 20190407
